FAERS Safety Report 6163680-9 (Version None)
Quarter: 2009Q2

REPORT INFORMATION
  Report Type: 
  Country: None (occurrence: None)
  Receive Date: 20090422
  Receipt Date: 20090416
  Transmission Date: 20091009
  Serious: Yes (Hospitalization)
  Sender: FDA-Public Use
  Company Number: US-ABBOTT-09P-163-0568752-00

PATIENT
  Sex: Female
  Weight: 53.118 kg

DRUGS (9)
  1. SYNTHROID [Suspect]
     Indication: HYPOTHYROIDISM
     Route: 048
     Dates: start: 19850101, end: 20090301
  2. SYNTHROID [Suspect]
     Route: 048
     Dates: start: 20090301, end: 20090401
  3. SYNTHROID [Suspect]
     Route: 048
     Dates: start: 20090401
  4. AVAPRO [Concomitant]
     Indication: HYPERTENSION
     Route: 048
  5. CALCIUM [Concomitant]
     Indication: DRUG USE FOR UNKNOWN INDICATION
     Route: 048
  6. CENTRUM SILVER [Concomitant]
     Indication: DRUG USE FOR UNKNOWN INDICATION
     Route: 048
  7. GLUCOSAMINE + CHONDROITIN [Concomitant]
     Indication: DRUG USE FOR UNKNOWN INDICATION
     Route: 048
  8. ASPIRIN [Concomitant]
     Indication: MITRAL VALVE PROLAPSE
     Route: 048
  9. CEPHALEXIN [Concomitant]
     Indication: ANTIBIOTIC PROPHYLAXIS

REACTIONS (5)
  - ALOPECIA [None]
  - DYSPHONIA [None]
  - MUSCLE SPASMS [None]
  - STAPHYLOCOCCAL INFECTION [None]
  - WEIGHT DECREASED [None]
